FAERS Safety Report 4349353-3 (Version None)
Quarter: 2004Q2

REPORT INFORMATION
  Report Type: 
  Country: None (occurrence: None)
  Receive Date: 20040426
  Receipt Date: 20040413
  Transmission Date: 20050107
  Serious: Yes (Other)
  Sender: FDA-Public Use
  Company Number: PT-JNJFOC-20040403643

PATIENT
  Age: 42 Year
  Sex: Female

DRUGS (1)
  1. ORTHO EVRA [Suspect]
     Indication: CONTRACEPTION
     Dosage: 1 DOSE (S), 3 IN 4 WEEK, TRANSDERMAL
     Route: 062
     Dates: start: 20040101, end: 20040101

REACTIONS (2)
  - AMENORRHOEA [None]
  - OVARIAN CYST [None]
